FAERS Safety Report 5931691-1 (Version None)
Quarter: 2008Q4

REPORT INFORMATION
  Report Type: 
  Country: None (occurrence: None)
  Receive Date: 20081023
  Receipt Date: 20060331
  Transmission Date: 20090506
  Serious: Yes (Hospitalization, Other)
  Sender: FDA-Public Use
  Company Number: 2006AL001959

PATIENT
  Age: 58 Year
  Sex: Male

DRUGS (13)
  1. DICLOFENAC SODIUM [Suspect]
     Indication: MYALGIA
     Dosage: 5 MG TID; PO
     Route: 048
     Dates: end: 20060301
  2. GABAPENTIN [Suspect]
     Dosage: 300 MG TID; PO
     Route: 048
  3. METOCLOPRAMIDE [Suspect]
     Dosage: 10 MG TID;
  4. DEXAMETHASONE [Concomitant]
  5. INTERFERON GAMMA [Concomitant]
  6. MORPHINE SULFATE INJ [Concomitant]
  7. LANSOPRZOLE [Concomitant]
  8. ESCITALOPRAM [Concomitant]
  9. MOVICOL [Concomitant]
  10. CO-DANTHRAMER [Concomitant]
  11. SENNA [Concomitant]
  12. MAGNESIUM HYDROXIDE TAB [Concomitant]
  13. ORAMORPH SR [Concomitant]

REACTIONS (1)
  - PEPTIC ULCER [None]
